FAERS Safety Report 8502448-2 (Version None)
Quarter: 2012Q3

REPORT INFORMATION
  Report Type: 
  Country: None (occurrence: None)
  Receive Date: 20120711
  Receipt Date: 20120702
  Transmission Date: 20120928
  Serious: No
  Sender: FDA-Public Use
  Company Number: JP-VERTEX PHARMACEUTICALS INC.-AE-2012-007728

PATIENT
  Age: 61 Year
  Sex: Male

DRUGS (11)
  1. LANTUS [Concomitant]
     Route: 058
  2. PEG-INTRON [Concomitant]
     Route: 058
     Dates: start: 20120509, end: 20120515
  3. PEG-INTRON [Concomitant]
     Route: 058
     Dates: start: 20120523
  4. REBETOL [Concomitant]
     Route: 048
     Dates: start: 20120523
  5. INCIVEK [Suspect]
     Indication: HEPATITIS C
     Route: 048
     Dates: start: 20120509, end: 20120514
  6. CONIEL [Concomitant]
     Route: 048
     Dates: start: 20120404, end: 20120526
  7. ALLOPURINOL [Concomitant]
     Route: 048
     Dates: start: 20120509, end: 20120514
  8. REBETOL [Concomitant]
     Route: 048
     Dates: start: 20120509, end: 20120522
  9. KINEDAK [Concomitant]
     Route: 048
     Dates: start: 20120331
  10. PEG-INTRON [Concomitant]
     Route: 058
     Dates: start: 20120516, end: 20120522
  11. ADOBIRA [Concomitant]
     Route: 058

REACTIONS (1)
  - ERYTHEMA [None]
